FAERS Safety Report 6543683-2 (Version None)
Quarter: 2010Q1

REPORT INFORMATION
  Report Type: 
  Country: None (occurrence: None)
  Receive Date: 20100120
  Receipt Date: 20100119
  Transmission Date: 20100710
  Serious: Yes (Hospitalization)
  Sender: FDA-Public Use
  Company Number: GXKR2010DE00884

PATIENT
  Age: 86 Year
  Sex: Male

DRUGS (4)
  1. RAMIPRIL [Suspect]
     Dosage: 2.5 MG/12.5 MG
     Dates: start: 20080121, end: 20080305
  2. ZOPICLONE (NGX) [Suspect]
     Dosage: 7.5 MG, QD
     Dates: start: 20080121, end: 20080305
  3. SEROQUEL [Suspect]
     Dosage: 50 MG, QD
     Dates: start: 20080131, end: 20080305
  4. EXELON [Suspect]
     Indication: DEMENTIA ALZHEIMER'S TYPE
     Dosage: 4.6 MG, QD
     Route: 062
     Dates: end: 20080206

REACTIONS (1)
  - CONFUSIONAL STATE [None]
